FAERS Safety Report 5654319-7 (Version None)
Quarter: 2008Q1

REPORT INFORMATION
  Report Type: 
  Country: None (occurrence: None)
  Receive Date: 20080131
  Receipt Date: 20071218
  Transmission Date: 20080703
  Serious: No
  Sender: FDA-Public Use
  Company Number: US200710004255

PATIENT
  Age: 34 Year
  Sex: Female
  Weight: 103.4 kg

DRUGS (3)
  1. BYETTA [Suspect]
     Dosage: 5 UG, 2/D
     Dates: start: 20071008, end: 20071009
  2. GLUCOPHAGE [Concomitant]
  3. OVCON (ETHINYLESTRADIOL, NORETHISTERONE) [Concomitant]

REACTIONS (2)
  - BLISTER [None]
  - PARAESTHESIA ORAL [None]
